FAERS Safety Report 8901598 (Version 1)
Quarter: 2012Q4

REPORT INFORMATION
  Report Type: Spontaneous
  Country: US (occurrence: None)
  Receive Date: 20121108
  Receipt Date: 20121108
  Transmission Date: 20130627
  Serious: Yes (Other)
  Sender: FDA-Public Use
  Company Number: None

PATIENT
  Age: 64 Year
  Sex: Male
  Weight: 64.41 kg

DRUGS (2)
  1. AVELOX [Suspect]
     Indication: PNEUMONIA
     Dates: start: 20121031, end: 20121104
  2. AVELOX [Suspect]
     Indication: CELLULITIS
     Dates: start: 20121031, end: 20121104

REACTIONS (1)
  - Tendonitis [None]
